FAERS Safety Report 8068760-9 (Version None)
Quarter: 2012Q1

REPORT INFORMATION
  Report Type: 
  Country: None (occurrence: None)
  Receive Date: 20120124
  Receipt Date: 20111228
  Transmission Date: 20120608
  Serious: No
  Sender: FDA-Public Use
  Company Number: US-AMGEN-USASP2011050173

PATIENT
  Age: 55 Year
  Sex: Female
  Weight: 60.771 kg

DRUGS (4)
  1. PROLIA [Suspect]
     Indication: OSTEOPOROSIS
     Dosage: 60 MG, Q6MO
     Dates: start: 20110323, end: 20110927
  2. CALCIUM W/VITAMIN D [Concomitant]
     Dosage: UNK
  3. CENTRUM SILVER                     /01292501/ [Concomitant]
     Dosage: UNK
  4. SYNTHROID [Concomitant]
     Dosage: UNK

REACTIONS (4)
  - BONE PAIN [None]
  - MYALGIA [None]
  - INFLUENZA LIKE ILLNESS [None]
  - ARTHRALGIA [None]
